FAERS Safety Report 7316302-5 (Version None)
Quarter: 2011Q1

REPORT INFORMATION
  Report Type: 
  Country: None (occurrence: None)
  Receive Date: 20110225
  Receipt Date: 20110216
  Transmission Date: 20110831
  Serious: Yes (Hospitalization)
  Sender: FDA-Public Use
  Company Number: FR-ASTRAZENECA-2011SE09334

PATIENT
  Age: 24 Year
  Sex: Female

DRUGS (2)
  1. EUROBIOL [Concomitant]
     Dosage: LONG LASTING
     Route: 048
  2. MERONEM [Suspect]
     Indication: CYSTIC FIBROSIS
     Route: 042
     Dates: start: 20101118, end: 20101118

REACTIONS (2)
  - MALAISE [None]
  - PARAESTHESIA [None]
